FAERS Safety Report 17329284 (Version 1)
Quarter: 2020Q1

REPORT INFORMATION
  Report Type: Spontaneous
  Country: US (occurrence: US)
  Receive Date: 20200127
  Receipt Date: 20200127
  Transmission Date: 20200409
  Serious: No
  Sender: FDA-Public Use
  Company Number: None

PATIENT
  Age: 15 Year
  Sex: Male

DRUGS (10)
  1. ADVAIR HFA 115/21 [Concomitant]
  2. PULMOZYME [Concomitant]
     Active Substance: DORNASE ALFA
  3. CETIRIZINE [Concomitant]
     Active Substance: CETIRIZINE HYDROCHLORIDE
  4. BETHKIS [Suspect]
     Active Substance: TOBRAMYCIN
     Indication: CYSTIC FIBROSIS
     Route: 055
  5. SYMDEKO [Suspect]
     Active Substance: IVACAFTOR\TEZACAFTOR
     Indication: CYSTIC FIBROSIS
     Route: 048
  6. LANSOPRAZOLE 15MG [Concomitant]
     Active Substance: LANSOPRAZOLE
  7. FLUTICASONE 50MCG NASAL SPRAY [Concomitant]
  8. ALBUTEROL 0.083% NEBS [Concomitant]
  9. DRONABINOL 2.5MG [Concomitant]
     Active Substance: DRONABINOL
  10. MONTELUKAST [Concomitant]
     Active Substance: MONTELUKAST SODIUM

REACTIONS (1)
  - Upper respiratory tract infection [None]

NARRATIVE: CASE EVENT DATE: 20200113
